FAERS Safety Report 8970421 (Version 1)
Quarter: 2012Q4

REPORT INFORMATION
  Report Type: 
  Country: US (occurrence: US)
  Receive Date: 20121218
  Receipt Date: 20121218
  Transmission Date: 20130627
  Serious: No
  Sender: FDA-Public Use
  Company Number: US-GLAXOSMITHKLINE-A0971441A

PATIENT
  Age: 47 Year
  Sex: Female

DRUGS (3)
  1. NICORETTE [Suspect]
     Indication: EX-TOBACCO USER
     Dates: start: 20120320, end: 20120323
  2. NICORETTE [Suspect]
     Indication: EX-TOBACCO USER
     Dates: start: 20120307
  3. NICORETTE [Suspect]
     Indication: EX-TOBACCO USER

REACTIONS (8)
  - Throat irritation [Recovered/Resolved]
  - Retching [Recovered/Resolved]
  - Fatigue [Recovered/Resolved]
  - Pain [Recovered/Resolved]
  - Pain in jaw [Recovered/Resolved]
  - Oral pain [Recovered/Resolved]
  - Toothache [Recovered/Resolved]
  - Drug administration error [Unknown]
